FAERS Safety Report 26143803 (Version 1)
Quarter: 2025Q4

REPORT INFORMATION
  Report Type: Spontaneous
  Country: US (occurrence: None)
  Receive Date: 20251211
  Receipt Date: 20251211
  Transmission Date: 20260118
  Serious: Yes (Hospitalization)
  Sender: ENCUBE ETHICALS PVT. LTD.
  Company Number: US-Encube-002646

PATIENT
  Age: 63 Year
  Sex: Male

DRUGS (4)
  1. FLUOROURACIL [Suspect]
     Active Substance: FLUOROURACIL
     Indication: Adenocarcinoma gastric
     Dosage: INFUSION BOLUS
  2. OXALIPLATIN [Suspect]
     Active Substance: OXALIPLATIN
     Indication: Adenocarcinoma gastric
     Dosage: INFUSION BOLUS
  3. LEUCOVORIN [Suspect]
     Active Substance: LEUCOVORIN\LEUCOVORIN CALCIUM
     Indication: Adenocarcinoma gastric
     Dosage: INFUSION BOLUS
  4. FLUOROURACIL [Suspect]
     Active Substance: FLUOROURACIL
     Indication: Adenocarcinoma gastric
     Dosage: INFUSION PUMP

REACTIONS (9)
  - Neurotoxicity [Recovering/Resolving]
  - Discoloured vomit [Unknown]
  - Nausea [Unknown]
  - Aphasia [Recovering/Resolving]
  - Generalised tonic-clonic seizure [Recovering/Resolving]
  - Off label use [Unknown]
  - Hemiparesis [Recovering/Resolving]
  - Encephalopathy [Recovering/Resolving]
  - Toxicity to various agents [Unknown]
